FAERS Safety Report 25531555 (Version 2)
Quarter: 2025Q3

REPORT INFORMATION
  Report Type: Report from Study
  Country: US (occurrence: US)
  Receive Date: 20250709
  Receipt Date: 20250809
  Transmission Date: 20251021
  Serious: Yes (Hospitalization)
  Sender: ALEXION PHARMACEUTICALS
  Company Number: US-AstraZeneca-CH-00903693A

PATIENT
  Sex: Female
  Weight: 68.945 kg

DRUGS (5)
  1. CAPIVASERTIB [Suspect]
     Active Substance: CAPIVASERTIB
     Indication: Breast cancer female
     Dosage: 400 MILLIGRAM, BID
  2. MINOXIDIL [Concomitant]
     Active Substance: MINOXIDIL
     Route: 065
  3. FASLODEX [Concomitant]
     Active Substance: FULVESTRANT
     Route: 065
  4. OXYCODONE AND ACETAMINOPHEN [Concomitant]
     Active Substance: ACETAMINOPHEN\OXYCODONE HYDROCHLORIDE
     Route: 065
  5. XGEVA [Concomitant]
     Active Substance: DENOSUMAB
     Route: 065

REACTIONS (2)
  - Diarrhoea [Unknown]
  - Arthralgia [Unknown]
